FAERS Safety Report 6254960-7 (Version None)
Quarter: 2009Q3

REPORT INFORMATION
  Report Type: 
  Country: None (occurrence: None)
  Receive Date: 20090702
  Receipt Date: 20090624
  Transmission Date: 20100115
  Serious: Yes (Other)
  Sender: FDA-Public Use
  Company Number: BE-MERCK-0906BEL00015

PATIENT
  Age: 56 Year
  Sex: Male
  Weight: 85 kg

DRUGS (3)
  1. ZOCOR [Suspect]
     Indication: HYPERCHOLESTEROLAEMIA
     Route: 048
  2. SOMATROPIN [Concomitant]
     Indication: GROWTH HORMONE DEFICIENCY
     Route: 065
     Dates: start: 20050507, end: 20051226
  3. KETOCONAZOLE [Suspect]
     Route: 065

REACTIONS (5)
  - ALANINE AMINOTRANSFERASE INCREASED [None]
  - ASPARTATE AMINOTRANSFERASE INCREASED [None]
  - BLOOD CREATINE PHOSPHOKINASE [None]
  - BLOOD LACTATE DEHYDROGENASE [None]
  - MYOPATHY [None]
